FAERS Safety Report 9844107 (Version 2)
Quarter: 2014Q1

REPORT INFORMATION
  Report Type: Spontaneous
  Country: AU (occurrence: AU)
  Receive Date: 20140127
  Receipt Date: 20140307
  Transmission Date: 20141002
  Serious: Yes (Other)
  Sender: FDA-Public Use
  Company Number: AU-ROCHE-1338844

PATIENT
  Sex: Female
  Weight: 90 kg

DRUGS (1)
  1. ACTEMRA [Suspect]
     Indication: RHEUMATOID ARTHRITIS
     Dosage: WEIGHT ADJUSTED DOSE.
     Route: 042
     Dates: start: 2011

REACTIONS (1)
  - Renal impairment [Unknown]
